FAERS Safety Report 20700314 (Version 2)
Quarter: 2024Q2

REPORT INFORMATION
  Report Type: Report from Study
  Country: US (occurrence: US)
  Receive Date: 20220412
  Receipt Date: 20240401
  Transmission Date: 20240715
  Serious: No
  Sender: FDA-Public Use
  Company Number: US-NOVARTISTESTPH-NVSC2022US082913

PATIENT
  Sex: Male

DRUGS (2)
  1. ZORTRESS [Suspect]
     Active Substance: EVEROLIMUS
     Indication: Product used for unknown indication
     Dosage: UNK
     Route: 065
  2. ZORTRESS [Suspect]
     Active Substance: EVEROLIMUS
     Dosage: 0.5 MG/KG, BID
     Route: 048
     Dates: start: 20190308

REACTIONS (2)
  - Malaise [Unknown]
  - Product dose omission issue [Unknown]
